FAERS Safety Report 15224916 (Version 1)
Quarter: 2018Q3

REPORT INFORMATION
  Report Type: Report from Study
  Country: None (occurrence: RO)
  Receive Date: 20180731
  Receipt Date: 20180731
  Transmission Date: 20181010
  Serious: Yes (Hospitalization)
  Sender: FDA-Public Use
  Company Number: RO-ABBVIE-18S-135-2432248-00

PATIENT
  Age: 62 Year
  Sex: Female

DRUGS (4)
  1. EXVIERA [Suspect]
     Active Substance: DASABUVIR
     Indication: HEPATITIS C
     Route: 048
     Dates: start: 20180509, end: 20180705
  2. EXVIERA [Suspect]
     Active Substance: DASABUVIR
     Indication: HEPATIC CIRRHOSIS
  3. VIEKIRAX [Suspect]
     Active Substance: OMBITASVIR\PARITAPREVIR\RITONAVIR
     Indication: HEPATITIS C
     Route: 048
     Dates: start: 20180509, end: 20180705
  4. VIEKIRAX [Suspect]
     Active Substance: OMBITASVIR\PARITAPREVIR\RITONAVIR
     Indication: HEPATIC CIRRHOSIS

REACTIONS (11)
  - Chromaturia [Recovered/Resolved]
  - Skin oedema [Recovering/Resolving]
  - Dizziness [Recovering/Resolving]
  - Eye infection [Recovered/Resolved]
  - Decreased appetite [Recovering/Resolving]
  - Ocular icterus [Recovering/Resolving]
  - Blood bilirubin increased [Recovering/Resolving]
  - Syncope [Recovering/Resolving]
  - Vision blurred [Not Recovered/Not Resolved]
  - Bilirubin conjugated increased [Recovering/Resolving]
  - Headache [Recovering/Resolving]

NARRATIVE: CASE EVENT DATE: 20180702
